FAERS Safety Report 7591522-3 (Version None)
Quarter: 2011Q3

REPORT INFORMATION
  Report Type: 
  Country: None (occurrence: None)
  Receive Date: 20110701
  Receipt Date: 20110701
  Transmission Date: 20111222
  Serious: Yes (Hospitalization)
  Sender: FDA-Public Use
  Company Number: None

PATIENT
  Sex: Male
  Weight: 73.1 kg

DRUGS (4)
  1. METHOTREXATE [Suspect]
     Dosage: 50 MG
  2. DEXAMETHASONE [Suspect]
     Dosage: 10 MG
  3. VINCRISTINE SULFATE [Suspect]
     Dosage: 2 MG
  4. MERCAPTOPURINE [Suspect]
     Dosage: 135 MG

REACTIONS (6)
  - SEPSIS [None]
  - BACTERAEMIA [None]
  - ABDOMINAL PAIN [None]
  - SYNCOPE [None]
  - NEUTROPENIA [None]
  - DYSPNOEA [None]
